FAERS Safety Report 13189423 (Version 1)
Quarter: 2017Q1

REPORT INFORMATION
  Report Type: Spontaneous
  Country: CA (occurrence: CA)
  Receive Date: 20170206
  Receipt Date: 20170206
  Transmission Date: 20170428
  Serious: Yes (Death, Other)
  Sender: FDA-Public Use
  Company Number: CA-SA-2017SA018136

PATIENT
  Age: 36 Year
  Sex: Female

DRUGS (11)
  1. CAPECITABINE. [Suspect]
     Active Substance: CAPECITABINE
     Route: 065
  2. KADCYLA [Suspect]
     Active Substance: ADO-TRASTUZUMAB EMTANSINE
     Dosage: DOSAGE FORM- POWDER FOR SOLUTION INTRAVENOUS
     Route: 065
  3. PERJETA [Suspect]
     Active Substance: PERTUZUMAB
     Indication: BREAST CANCER METASTATIC
     Dosage: DOSAGE FORM-SOLUTION INTRAVENOUS
     Route: 065
  4. DOCETAXEL. [Suspect]
     Active Substance: DOCETAXEL
     Indication: BREAST CANCER STAGE II
     Dosage: DOSAGE FORM- SOLUTION INTRAVENOUS
     Route: 042
  5. TRASTUZUMAB [Suspect]
     Active Substance: TRASTUZUMAB
     Indication: BREAST CANCER METASTATIC
     Route: 065
  6. FLUOROURACIL. [Concomitant]
     Active Substance: FLUOROURACIL
     Route: 065
  7. CYCLOPHOSPHAMIDE. [Concomitant]
     Active Substance: CYCLOPHOSPHAMIDE
     Route: 065
  8. LAPATINIB [Suspect]
     Active Substance: LAPATINIB
     Route: 065
  9. DOCETAXEL. [Suspect]
     Active Substance: DOCETAXEL
     Indication: BREAST CANCER METASTATIC
     Dosage: DOSAGE FORM- SOLUTION INTRAVENOUS
     Route: 042
  10. EPIRUBICIN [Concomitant]
     Active Substance: EPIRUBICIN
     Route: 065
  11. TRASTUZUMAB [Suspect]
     Active Substance: TRASTUZUMAB
     Indication: BREAST CANCER STAGE II
     Route: 065

REACTIONS (5)
  - Hypoxia [Unknown]
  - Malignant pleural effusion [Unknown]
  - Pleural effusion [Unknown]
  - Death [Fatal]
  - Pericardial effusion [Unknown]
